FAERS Safety Report 7304270-1 (Version None)
Quarter: 2011Q1

REPORT INFORMATION
  Report Type: 
  Country: None (occurrence: None)
  Receive Date: 20110221
  Receipt Date: 20110210
  Transmission Date: 20110831
  Serious: Yes (Hospitalization)
  Sender: FDA-Public Use
  Company Number: PHHY2011US08430

PATIENT
  Sex: Male

DRUGS (6)
  1. TEKTURNA HCT [Suspect]
     Indication: HYPERTENSION
     Dosage: 300/25 MG ONE PER DAY
     Route: 048
     Dates: start: 20100831, end: 20110121
  2. PROCARDIA [Suspect]
  3. POTASSIUM [Concomitant]
  4. EILTIADEM CD [Concomitant]
  5. PROTONIX [Concomitant]
  6. ASPIRIN [Concomitant]

REACTIONS (6)
  - LOSS OF CONSCIOUSNESS [None]
  - ANGIOPATHY [None]
  - BLOOD PRESSURE DECREASED [None]
  - LIMB DISCOMFORT [None]
  - ROAD TRAFFIC ACCIDENT [None]
  - CONVULSION [None]
